FAERS Safety Report 18196600 (Version 1)
Quarter: 2020Q3

REPORT INFORMATION
  Report Type: Spontaneous
  Country: CA (occurrence: CA)
  Receive Date: 20200826
  Receipt Date: 20200826
  Transmission Date: 20201103
  Serious: Yes (Hospitalization)
  Sender: FDA-Public Use
  Company Number: CA-CELLTRION INC.-2019CA027217

PATIENT

DRUGS (10)
  1. INFLECTRA [Suspect]
     Active Substance: INFLIXIMAB-DYYB
     Dosage: 1500 MG, AT 0,2, 6, THEN EVERY 8 WEEKS
     Route: 042
     Dates: start: 20200206
  2. INFLECTRA [Suspect]
     Active Substance: INFLIXIMAB-DYYB
     Dosage: 1500 MG, AT 0,2, 6, THEN EVERY 8 WEEKS
     Route: 042
     Dates: start: 20200108
  3. INFLECTRA [Suspect]
     Active Substance: INFLIXIMAB-DYYB
     Dosage: 1500 MG, AT 0,2, 6, THEN EVERY 8 WEEKS
     Route: 042
     Dates: start: 20200401
  4. CODEINE [Concomitant]
     Active Substance: CODEINE
     Dosage: UNK
     Route: 065
  5. INFLECTRA [Suspect]
     Active Substance: INFLIXIMAB-DYYB
     Dosage: 1500 MG, OR 10 MG/KG EVERY 6 WEEKS
     Route: 042
     Dates: start: 20200709
  6. PREDNISONE. [Concomitant]
     Active Substance: PREDNISONE
     Dosage: 50 MG, 1X/DAY
     Route: 048
  7. INFLECTRA [Suspect]
     Active Substance: INFLIXIMAB-DYYB
     Dosage: 1500 MG, AT 0,2, 6, THEN EVERY 8 WEEKS
     Route: 042
     Dates: start: 20191224, end: 20200401
  8. INFLECTRA [Suspect]
     Active Substance: INFLIXIMAB-DYYB
     Dosage: 1500 MG, OR 10 MG/KG EVERY 6 WEEKS
     Route: 042
     Dates: start: 20200819
  9. INFLECTRA [Suspect]
     Active Substance: INFLIXIMAB-DYYB
     Indication: CROHN^S DISEASE
     Dosage: 1500 MG, AT 0,2, 6, THEN EVERY 8 WEEKS
     Route: 042
     Dates: start: 20191224, end: 20191224
  10. INFLECTRA [Suspect]
     Active Substance: INFLIXIMAB-DYYB
     Dosage: 1500 MG OR 10 MG/KG EVERY 6 WEEKS
     Route: 042
     Dates: start: 20200526

REACTIONS (4)
  - Infection [Unknown]
  - Condition aggravated [Unknown]
  - Off label use [Unknown]
  - Anal fissure [Unknown]

NARRATIVE: CASE EVENT DATE: 20200401
